FAERS Safety Report 5186387-3 (Version None)
Quarter: 2006Q4

REPORT INFORMATION
  Report Type: 
  Country: None (occurrence: None)
  Receive Date: 20061220
  Receipt Date: 20060905
  Transmission Date: 20070319
  Serious: Yes (Hospitalization, Other)
  Sender: FDA-Public Use
  Company Number: US-SHR-US-2006-025954

PATIENT
  Age: 54 Year
  Sex: Female
  Weight: 79.4 kg

DRUGS (16)
  1. CLIMARA [Suspect]
     Dosage: .1 MG/D, CONT
     Route: 062
  2. KERLONE [Concomitant]
     Dosage: 10 MG, 1X/DAY
  3. MICARDIS HCT [Concomitant]
     Dosage: 40/12.5 MG, EVERY 2D
  4. ZELNORM                                 /USA/ [Concomitant]
     Dosage: 6 MG, 2X/DAY
  5. NEXIUM [Concomitant]
     Dosage: 40 MG, 2-3 DAY
  6. REGLAN                                  /USA/ [Concomitant]
     Dosage: 10 MG, 4X/DAY
  7. ZOLOFT [Concomitant]
     Dosage: 75 MG, 1X/DAY
  8. LEVOXYL [Concomitant]
     Dosage: 100 A?G, 1X/DAY
  9. LIPITOR [Concomitant]
     Dosage: 20 MG, 1X/DAY
  10. JANUVIA [Concomitant]
     Dosage: 100 MG, 1X/DAY
  11. AVANDIA [Concomitant]
     Dosage: 2 MG, 1X/DAY
  12. METFORMIN [Concomitant]
  13. PRANDIN [Concomitant]
     Dosage: 2 MG, EVERY 2D
  14. LANTUS [Concomitant]
     Dosage: 20 UNITS, 1X/DAY
  15. COUMADIN [Concomitant]
     Dosage: 9 MG, 1X/DAY
  16. XANAX [Concomitant]
     Dosage: 1 MG, AS REQ'D

REACTIONS (4)
  - APPENDICITIS [None]
  - JOINT SWELLING [None]
  - RENAL EMBOLISM [None]
  - RENAL INFARCT [None]
